FAERS Safety Report 15117870 (Version 1)
Quarter: 2018Q3

REPORT INFORMATION
  Report Type: Spontaneous
  Country: US (occurrence: US)
  Receive Date: 20180706
  Receipt Date: 20180706
  Transmission Date: 20181010
  Serious: Yes (Other)
  Sender: FDA-Public Use
  Company Number: US-TAKEDA-2018TUS021294

PATIENT
  Age: 63 Year
  Sex: Female

DRUGS (3)
  1. ENTYVIO [Suspect]
     Active Substance: VEDOLIZUMAB
     Indication: COLITIS ULCERATIVE
     Dosage: 300 MG, UNK
     Route: 042
     Dates: start: 20180306
  2. CORTISONE [Concomitant]
     Active Substance: CORTISONE\HYDROCORTISONE
     Indication: COLITIS ULCERATIVE
     Dosage: UNK
     Dates: start: 20180511
  3. PHENERGAN [Concomitant]
     Active Substance: PROMETHAZINE HYDROCHLORIDE
     Indication: NAUSEA
     Dosage: UNK
     Dates: end: 20180620

REACTIONS (3)
  - Generalised tonic-clonic seizure [Recovered/Resolved]
  - Blood potassium decreased [Unknown]
  - Postictal state [Unknown]

NARRATIVE: CASE EVENT DATE: 20180602
